FAERS Safety Report 5960652-1 (Version None)
Quarter: 2008Q4

REPORT INFORMATION
  Report Type: 
  Country: None (occurrence: None)
  Receive Date: 20081120
  Receipt Date: 20080707
  Transmission Date: 20090506
  Serious: No
  Sender: FDA-Public Use
  Company Number: US-ABBOTT-08P-163-0461399-00

PATIENT
  Sex: Female
  Weight: 72.64 kg

DRUGS (9)
  1. BIAXIN [Suspect]
     Indication: DRUG USE FOR UNKNOWN INDICATION
  2. TRAMADOL HCL [Concomitant]
     Indication: ARTHRALGIA
     Route: 048
     Dates: start: 19960101
  3. OMEPRAZOLE MAGNESIUM [Concomitant]
     Indication: ABDOMINAL DISCOMFORT
     Route: 048
     Dates: start: 19991001
  4. SPIRONOLACTONE [Concomitant]
     Indication: FLUID RETENTION
     Route: 048
     Dates: start: 20030706
  5. ALBUTEROL SULFATE [Concomitant]
     Indication: ASTHMA
     Route: 055
     Dates: start: 20080401
  6. RISEDRONATE SODIUM [Concomitant]
     Indication: OSTEOPOROSIS
     Route: 048
     Dates: start: 20060201
  7. PREGABALIN [Concomitant]
     Indication: FIBROMYALGIA
     Route: 048
     Dates: start: 20080101
  8. VENLAFAXINE HCL [Concomitant]
     Indication: ANXIETY
     Route: 048
     Dates: start: 20080524
  9. DEPROVERA [Concomitant]
     Indication: HOT FLUSH
     Dosage: EVERY 3 MONTHS IN DOCTOR'S OFFICE
     Route: 050
     Dates: start: 20080409

REACTIONS (1)
  - NAUSEA [None]
